FAERS Safety Report 9322752 (Version 3)
Quarter: 2014Q1

REPORT INFORMATION
  Report Type: Spontaneous
  Country: US (occurrence: US)
  Receive Date: 20130601
  Receipt Date: 20140328
  Transmission Date: 20141002
  Serious: No
  Sender: FDA-Public Use
  Company Number: US-ASTRAZENECA-2013SE38570

PATIENT
  Age: 40 Year
  Sex: Female
  Weight: 51.3 kg

DRUGS (7)
  1. NEXIUM [Suspect]
     Indication: GASTROOESOPHAGEAL REFLUX DISEASE
     Route: 048
     Dates: start: 1997
  2. NEXIUM [Suspect]
     Indication: GASTROOESOPHAGEAL REFLUX DISEASE
     Route: 048
     Dates: start: 201104, end: 201212
  3. DEXILANT/KAPIDEX [Concomitant]
     Dates: start: 200907, end: 200912
  4. DEXILANT/KAPIDEX [Concomitant]
     Dates: start: 201006, end: 201103
  5. PREVACID [Concomitant]
     Dates: start: 2008, end: 2009
  6. IBUPROFEN [Concomitant]
  7. PROTONIX [Concomitant]
     Dosage: TWICE IN DAY

REACTIONS (9)
  - Osteoporosis [Unknown]
  - Bone disorder [Unknown]
  - Foot fracture [Unknown]
  - Limb injury [Unknown]
  - Joint injury [Unknown]
  - Fracture [Unknown]
  - Benign ovarian tumour [Unknown]
  - Uterine disorder [Unknown]
  - Dyspnoea [Unknown]
